FAERS Safety Report 22620267 (Version 1)
Quarter: 2023Q2

REPORT INFORMATION
  Report Type: Spontaneous
  Country: US (occurrence: US)
  Receive Date: 20230620
  Receipt Date: 20230620
  Transmission Date: 20230722
  Serious: No
  Sender: FDA-Public Use
  Company Number: US-AMGEN-USASP2023105035

PATIENT
  Age: 8 Day
  Sex: Female
  Weight: 3.2 kg

DRUGS (15)
  1. EPOGEN [Suspect]
     Active Substance: ERYTHROPOIETIN
     Indication: Cardiopulmonary bypass
     Dosage: 500 U/KG, EVERY OTHER DAY, FOR A TOTAL OF TWO DOSES BEFORE SURGERY
     Route: 058
  2. EPOGEN [Suspect]
     Active Substance: ERYTHROPOIETIN
     Indication: Off label use
  3. FERROUS SULFATE [Concomitant]
     Active Substance: FERROUS SULFATE
     Dosage: 5 MILLIGRAM/KILOGRAM, QD, TWICE A DAY FOR A TOTAL OF FOUR DOSES BEFORE SURGERY
  4. TRANEXAMIC ACID [Concomitant]
     Active Substance: TRANEXAMIC ACID
     Dosage: 320 MILLIGRAM, DURING ANESTHESIA INDUCTION
  5. TRANEXAMIC ACID [Concomitant]
     Active Substance: TRANEXAMIC ACID
     Dosage: 320 MILLIGRAM, BY PERFUSION WITH THE INITIATION OF BYPASS
  6. TRANEXAMIC ACID [Concomitant]
     Active Substance: TRANEXAMIC ACID
     Dosage: 320 MILLIGRAM, AFTER THE ADMINISTRATION OF PROTAMINE
  7. SODIUM BICARBONATE [Concomitant]
     Active Substance: SODIUM BICARBONATE
     Dosage: 6 MEQ
  8. HEPARIN SODIUM [Concomitant]
     Active Substance: HEPARIN SODIUM
     Dosage: 1000 INTERNATIONAL UNIT
  9. MANNITOL [Concomitant]
     Active Substance: MANNITOL
     Dosage: 1750 MILLIGRAM
  10. ALBUMIN HUMAN [Concomitant]
     Active Substance: ALBUMIN HUMAN
     Dosage: 50 MILLILITER
  11. HEPARIN [Concomitant]
     Active Substance: HEPARIN SODIUM
     Dosage: 1300 IU
  12. ANTICOAGULANT CITRATE DEXTROSE SOLUTION (ACD) NOS [Concomitant]
     Active Substance: CITRIC ACID MONOHYDRATE\DEXTROSE\SODIUM CITRATE
     Dosage: 8 MILLILITER
  13. PHENYLEPHRINE [Concomitant]
     Active Substance: PHENYLEPHRINE HYDROCHLORIDE
  14. MAGNESIUM SULFATE [Concomitant]
     Active Substance: MAGNESIUM SULFATE
     Dosage: 160 MILLIGRAM
  15. PROTAMINE SULFATE [Concomitant]
     Active Substance: PROTAMINE SULFATE
     Dosage: 15 MILLIGRAM

REACTIONS (1)
  - Off label use [Unknown]
